FAERS Safety Report 6850063-9 (Version None)
Quarter: 2010Q3

REPORT INFORMATION
  Report Type: 
  Country: None (occurrence: None)
  Receive Date: 20100716
  Receipt Date: 20100707
  Transmission Date: 20110219
  Serious: Yes (Hospitalization, Other)
  Sender: FDA-Public Use
  Company Number: CA-ABBOTT-10P-028-0656097-00

PATIENT
  Sex: Female

DRUGS (19)
  1. HUMIRA [Suspect]
     Indication: RHEUMATOID ARTHRITIS
     Route: 058
     Dates: start: 20060915
  2. DOCUSATE SODIUM [Concomitant]
     Indication: CONSTIPATION
     Dosage: 100MG ONCE A DAY AS NEEDED
     Route: 048
  3. PREVACID [Concomitant]
     Indication: GASTRIC DISORDER
     Route: 048
  4. PREDNISONE [Concomitant]
     Indication: PRODUCT USED FOR UNKNOWN INDICATION
  5. NOVO PERIDOL [Concomitant]
     Indication: PRODUCT USED FOR UNKNOWN INDICATION
     Dosage: 1/2-2MG TABLET ONCE A DAY
     Route: 048
  6. PENNSAID [Concomitant]
     Indication: PRODUCT USED FOR UNKNOWN INDICATION
  7. HYDROMORPHONE [Concomitant]
     Indication: PRODUCT USED FOR UNKNOWN INDICATION
     Route: 048
  8. METOPROLOL [Concomitant]
     Indication: HYPERTENSION
  9. NOVOSEMIDE [Concomitant]
     Indication: PRODUCT USED FOR UNKNOWN INDICATION
     Route: 048
  10. APO LISINOPRIL [Concomitant]
     Indication: PRODUCT USED FOR UNKNOWN INDICATION
     Route: 048
  11. APAPHEN [Concomitant]
     Indication: PRODUCT USED FOR UNKNOWN INDICATION
     Route: 048
  12. HUMALOG [Concomitant]
     Indication: DIABETES MELLITUS
     Route: 058
  13. SYNTHROID [Concomitant]
     Indication: HYPOTHYROIDISM
  14. ALENDRONATE SODIUM [Concomitant]
     Indication: BONE DENSITY DECREASED
     Route: 048
  15. NOVOQUININE [Concomitant]
     Indication: MUSCLE SPASMS
     Route: 048
  16. CRESTOR [Concomitant]
     Indication: BLOOD CHOLESTEROL INCREASED
     Route: 048
  17. CALTRATE [Concomitant]
     Indication: PRODUCT USED FOR UNKNOWN INDICATION
     Route: 048
  18. SANDOZ NITRAZEPAM [Concomitant]
     Indication: PRODUCT USED FOR UNKNOWN INDICATION
     Route: 048
  19. EURO SENNA [Concomitant]
     Indication: CONSTIPATION
     Route: 048

REACTIONS (2)
  - OSTEOARTHRITIS [None]
  - PNEUMONITIS [None]
